FAERS Safety Report 7963849-4 (Version None)
Quarter: 2011Q4

REPORT INFORMATION
  Report Type: 
  Country: None (occurrence: None)
  Receive Date: 20111208
  Receipt Date: 20111111
  Transmission Date: 20120403
  Serious: No
  Sender: FDA-Public Use
  Company Number: US-BAYER-2011-110470

PATIENT
  Age: 61 Year
  Sex: Female
  Weight: 76 kg

DRUGS (10)
  1. MAGNESIUM SULFATE [Concomitant]
  2. ALEVE (CAPLET) [Suspect]
     Dosage: UNK, PRN
     Route: 048
  3. VITAMIN D [Concomitant]
  4. ZINC OXIDE [Concomitant]
  5. ASPIRIN [Concomitant]
  6. ALEVE (CAPLET) [Suspect]
     Indication: PAIN
     Dosage: UNK UNK, PRN
     Route: 048
     Dates: start: 20111101, end: 20111101
  7. VITAMIN B-12 [Concomitant]
  8. FISH OIL [Concomitant]
  9. MULTIVITAMIN [Concomitant]
  10. ASCORBIC ACID [Concomitant]

REACTIONS (2)
  - LIP SWELLING [None]
  - DRUG INEFFECTIVE [None]
